FAERS Safety Report 25924986 (Version 1)
Quarter: 2025Q4

REPORT INFORMATION
  Report Type: Spontaneous
  Country: US (occurrence: US)
  Receive Date: 20251015
  Receipt Date: 20251015
  Transmission Date: 20260118
  Serious: No
  Sender: SHIELD THERAPEUTICS
  Company Number: US-SHIELD THERAPEUTICS-US-STX-25-00082

PATIENT
  Age: 48 Year
  Sex: Female

DRUGS (1)
  1. ACCRUFER [Suspect]
     Active Substance: FERRIC MALTOL
     Indication: Blood iron decreased
     Dosage: 30 MILLIGRAM, BID, ON AN EMPTY STOMACH
     Route: 048

REACTIONS (3)
  - Gastrooesophageal reflux disease [Recovering/Resolving]
  - Nausea [Recovering/Resolving]
  - Constipation [Recovering/Resolving]
